FAERS Safety Report 25250186 (Version 1)
Quarter: 2025Q2

REPORT INFORMATION
  Report Type: Spontaneous
  Country: IN (occurrence: IN)
  Receive Date: 20250429
  Receipt Date: 20250429
  Transmission Date: 20250716
  Serious: Yes (Other)
  Sender: MYLAN
  Company Number: IN-MYLANLABS-2025M1036230

PATIENT
  Age: 21 Year
  Sex: Female

DRUGS (28)
  1. DOXORUBICIN [Suspect]
     Active Substance: DOXORUBICIN
     Indication: Hodgkin^s disease
  2. DOXORUBICIN [Suspect]
     Active Substance: DOXORUBICIN
     Route: 065
  3. DOXORUBICIN [Suspect]
     Active Substance: DOXORUBICIN
     Route: 065
  4. DOXORUBICIN [Suspect]
     Active Substance: DOXORUBICIN
  5. CARBOPLATIN [Suspect]
     Active Substance: CARBOPLATIN
     Indication: Hodgkin^s disease
  6. CARBOPLATIN [Suspect]
     Active Substance: CARBOPLATIN
     Route: 065
  7. CARBOPLATIN [Suspect]
     Active Substance: CARBOPLATIN
     Route: 065
  8. CARBOPLATIN [Suspect]
     Active Substance: CARBOPLATIN
  9. ETOPOSIDE [Suspect]
     Active Substance: ETOPOSIDE
     Indication: Hodgkin^s disease
  10. ETOPOSIDE [Suspect]
     Active Substance: ETOPOSIDE
     Route: 065
  11. ETOPOSIDE [Suspect]
     Active Substance: ETOPOSIDE
     Route: 065
  12. ETOPOSIDE [Suspect]
     Active Substance: ETOPOSIDE
  13. BLEOMYCIN [Suspect]
     Active Substance: BLEOMYCIN SULFATE
     Indication: Hodgkin^s disease
  14. BLEOMYCIN [Suspect]
     Active Substance: BLEOMYCIN SULFATE
     Route: 065
  15. BLEOMYCIN [Suspect]
     Active Substance: BLEOMYCIN SULFATE
     Route: 065
  16. BLEOMYCIN [Suspect]
     Active Substance: BLEOMYCIN SULFATE
  17. VINBLASTINE [Suspect]
     Active Substance: VINBLASTINE
     Indication: Hodgkin^s disease
  18. VINBLASTINE [Suspect]
     Active Substance: VINBLASTINE
     Route: 065
  19. VINBLASTINE [Suspect]
     Active Substance: VINBLASTINE
     Route: 065
  20. VINBLASTINE [Suspect]
     Active Substance: VINBLASTINE
  21. DACARBAZINE [Suspect]
     Active Substance: DACARBAZINE
     Indication: Hodgkin^s disease
  22. DACARBAZINE [Suspect]
     Active Substance: DACARBAZINE
     Route: 065
  23. DACARBAZINE [Suspect]
     Active Substance: DACARBAZINE
     Route: 065
  24. DACARBAZINE [Suspect]
     Active Substance: DACARBAZINE
  25. IFOSFAMIDE [Suspect]
     Active Substance: IFOSFAMIDE
     Indication: Hodgkin^s disease
  26. IFOSFAMIDE [Suspect]
     Active Substance: IFOSFAMIDE
     Route: 065
  27. IFOSFAMIDE [Suspect]
     Active Substance: IFOSFAMIDE
     Route: 065
  28. IFOSFAMIDE [Suspect]
     Active Substance: IFOSFAMIDE

REACTIONS (1)
  - Drug ineffective [Unknown]
